FAERS Safety Report 4867335-X (Version None)
Quarter: 2005Q4

REPORT INFORMATION
  Report Type: 
  Country: None (occurrence: None)
  Receive Date: 20051223
  Receipt Date: 20051223
  Transmission Date: 20060501
  Serious: Yes (Hospitalization)
  Sender: FDA-Public Use
  Company Number: None

PATIENT
  Age: 13 Year
  Sex: Male
  Weight: 18 kg

DRUGS (1)
  1. VALPROIC ACID [Suspect]
     Indication: CONVULSION
     Dosage: PO
     Route: 048

REACTIONS (5)
  - HEPATOTOXICITY [None]
  - LETHARGY [None]
  - LIVER FUNCTION TEST ABNORMAL [None]
  - PYREXIA [None]
  - VIRAL INFECTION [None]
